FAERS Safety Report 6925519-0 (Version None)
Quarter: 2010Q3

REPORT INFORMATION
  Report Type: 
  Country: None (occurrence: None)
  Receive Date: 20100816
  Receipt Date: 20100811
  Transmission Date: 20110219
  Serious: Yes (Death, Life-Threatening)
  Sender: FDA-Public Use
  Company Number: US-NOVOPROD-312986

PATIENT
  Age: 52 Year
  Sex: Male

DRUGS (12)
  1. NOVORAPID CHU [Suspect]
     Indication: TYPE 2 DIABETES MELLITUS
     Dosage: 8 U, QD
     Dates: end: 20090923
  2. NOVORAPID 30 MIX CHU [Suspect]
     Indication: TYPE 2 DIABETES MELLITUS
     Dosage: 20 U, QD
     Dates: end: 20090923
  3. PIRFENIDONE [Concomitant]
     Indication: IDIOPATHIC PULMONARY FIBROSIS
     Dosage: 200 MG, TID
     Route: 048
     Dates: start: 20090710
  4. PIRFENIDONE [Concomitant]
     Dosage: 400 MG, TID
     Route: 048
     Dates: start: 20090724
  5. PIRFENIDONE [Concomitant]
     Dosage: 600 MG, TID
     Route: 048
     Dates: start: 20090807, end: 20090912
  6. PREDNISOLONE [Concomitant]
     Indication: PRODUCT USED FOR UNKNOWN INDICATION
     Dosage: UNKNOWN, START PRIOR TO EVENTS
  7. COTRIM [Concomitant]
     Indication: PRODUCT USED FOR UNKNOWN INDICATION
  8. BUP-4 [Concomitant]
     Indication: PRODUCT USED FOR UNKNOWN INDICATION
  9. MAGMITT [Concomitant]
     Indication: PRODUCT USED FOR UNKNOWN INDICATION
  10. GASTER                             /00661201/ [Concomitant]
     Indication: PRODUCT USED FOR UNKNOWN INDICATION
  11. BONALON                            /01220301/ [Concomitant]
     Indication: PRODUCT USED FOR UNKNOWN INDICATION
  12. IMURAN [Concomitant]
     Indication: PRODUCT USED FOR UNKNOWN INDICATION

REACTIONS (3)
  - BLOOD GLUCOSE DECREASED [None]
  - IDIOPATHIC PULMONARY FIBROSIS [None]
  - URINARY TRACT INFECTION [None]
